FAERS Safety Report 18043852 (Version 1)
Quarter: 2020Q3

REPORT INFORMATION
  Report Type: Spontaneous
  Country: US (occurrence: US)
  Receive Date: 20200720
  Receipt Date: 20200720
  Transmission Date: 20201103
  Serious: Yes (Other)
  Sender: FDA-Public Use
  Company Number: US-PFIZER INC-2020273772

PATIENT
  Sex: Male
  Weight: 90 kg

DRUGS (1)
  1. LINEZOLID. [Suspect]
     Active Substance: LINEZOLID
     Indication: UROSEPSIS
     Dosage: 600 MG, 2X/DAY (EVERY 12 H FOR 12 D)
     Dates: start: 2003, end: 2003

REACTIONS (4)
  - Renal impairment [Recovering/Resolving]
  - Lactic acidosis [Unknown]
  - Drug intolerance [Unknown]
  - Rash [Unknown]

NARRATIVE: CASE EVENT DATE: 2003
